FAERS Safety Report 6648776-7 (Version None)
Quarter: 2010Q1

REPORT INFORMATION
  Report Type: 
  Country: None (occurrence: None)
  Receive Date: 20100324
  Receipt Date: 20100222
  Transmission Date: 20100710
  Serious: Yes (Hospitalization)
  Sender: FDA-Public Use
  Company Number: PHHY2010US07765

PATIENT
  Sex: Male
  Weight: 110 kg

DRUGS (1)
  1. ERL 080A ERL+TAB [Suspect]
     Indication: RENAL TRANSPLANT
     Dosage: 1440 UNK, UNK
     Route: 048
     Dates: start: 20071228

REACTIONS (3)
  - CONGENITAL CYSTIC KIDNEY DISEASE [None]
  - NEPHRECTOMY [None]
  - PAIN [None]
